FAERS Safety Report 6346733-1 (Version None)
Quarter: 2009Q3

REPORT INFORMATION
  Report Type: 
  Country: None (occurrence: None)
  Receive Date: 20090904
  Receipt Date: 20090827
  Transmission Date: 20100115
  Serious: Yes (Other)
  Sender: FDA-Public Use
  Company Number: 2009009986

PATIENT
  Sex: Female

DRUGS (1)
  1. EFFENTORA(400 MICROGRAM, TABLETS) [Suspect]
     Dosage: 2400 MCG (400 MCG,1 IN 4 HR), BUCCAL ; (600 MCG),BUCCAL
     Route: 002

REACTIONS (2)
  - AGITATION [None]
  - DRUG TOXICITY [None]
